FAERS Safety Report 9644252 (Version 1)
Quarter: 2013Q4

REPORT INFORMATION
  Report Type: Spontaneous
  Country: BR (occurrence: BR)
  Receive Date: 20131024
  Receipt Date: 20131024
  Transmission Date: 20140711
  Serious: Yes (Hospitalization)
  Sender: FDA-Public Use
  Company Number: BR-ASTRAZENECA-2013SE77033

PATIENT
  Age: 60 Year
  Sex: Female
  Weight: 83 kg

DRUGS (3)
  1. CRESTOR [Suspect]
     Indication: BLOOD CHOLESTEROL INCREASED
     Route: 048
     Dates: start: 2012
  2. SYNTHROID [Concomitant]
     Dates: start: 2000
  3. ARADOIS [Concomitant]
     Dates: start: 2003

REACTIONS (1)
  - Myocardial infarction [Recovered/Resolved]
